FAERS Safety Report 7206616-1 (Version None)
Quarter: 2011Q1

REPORT INFORMATION
  Report Type: 
  Country: None (occurrence: None)
  Receive Date: 20110103
  Receipt Date: 20101227
  Transmission Date: 20110831
  Serious: Yes (Hospitalization)
  Sender: FDA-Public Use
  Company Number: IT-SANOFI-AVENTIS-2010SA063537

PATIENT
  Age: 56 Year
  Sex: Female

DRUGS (4)
  1. METHOTREXATE ^WYETH LEDERLE^ [Suspect]
     Indication: RHEUMATOID ARTHRITIS
     Route: 030
     Dates: start: 20040101, end: 20101001
  2. ARAVA [Suspect]
     Indication: RHEUMATOID ARTHRITIS
     Route: 048
     Dates: start: 20050101, end: 20101001
  3. ALL OTHER THERAPEUTIC PRODUCTS [Concomitant]
  4. OTHER CYTOKINES AND IMMUNOMODULATING AGENTS [Suspect]
     Indication: RHEUMATOID ARTHRITIS
     Route: 042
     Dates: start: 20100706, end: 20100906

REACTIONS (2)
  - ACUTE MYOCARDIAL INFARCTION [None]
  - SENSORY LOSS [None]
